FAERS Safety Report 25117925 (Version 1)
Quarter: 2025Q1

REPORT INFORMATION
  Report Type: Spontaneous
  Country: US (occurrence: US)
  Receive Date: 20250325
  Receipt Date: 20250325
  Transmission Date: 20250408
  Serious: No
  Sender: TEVA
  Company Number: US-TEVA-VS-3309288

PATIENT
  Age: 66 Year
  Sex: Female

DRUGS (1)
  1. AUSTEDO XR [Suspect]
     Active Substance: DEUTETRABENAZINE
     Indication: Tardive dyskinesia
     Dosage: 1 TABLET DAILY
     Route: 065

REACTIONS (3)
  - Mental disorder [Unknown]
  - Intentional dose omission [Unknown]
  - Product use issue [Unknown]
